FAERS Safety Report 8953509 (Version 3)
Quarter: 2015Q1

REPORT INFORMATION
  Report Type: Report from Study
  Country: FR (occurrence: FR)
  Receive Date: 20121206
  Receipt Date: 20150305
  Transmission Date: 20150721
  Serious: Yes (Hospitalization)
  Sender: FDA-Public Use
  Company Number: FR-ROCHE-1165292

PATIENT
  Age: 71 Year
  Sex: Male

DRUGS (5)
  1. METHOTREXATE [Concomitant]
     Active Substance: METHOTREXATE
     Route: 065
  2. RITUXIMAB [Suspect]
     Active Substance: RITUXIMAB
     Indication: RHEUMATOID ARTHRITIS
     Dosage: ON 19/OCT/2006 (DAY 15), 14/APR/2009 (DAY 1), 29/APR/2009 (DAY 15),
     Route: 065
     Dates: start: 20061005
  3. CORTANCYL [Concomitant]
     Active Substance: PREDNISONE
     Route: 065
  4. HYDROCORTISONE HEMISUCCINATE [Concomitant]
     Active Substance: HYDROCORTISONE HEMISUCCINATE
     Route: 065
     Dates: start: 20090626
  5. PERFALGAN [Concomitant]
     Active Substance: ACETAMINOPHEN
     Route: 065
     Dates: start: 20090626

REACTIONS (11)
  - Bronchopneumonia [Unknown]
  - Confusional state [Unknown]
  - Oedema peripheral [Not Recovered/Not Resolved]
  - Acute kidney injury [Unknown]
  - Shock [Unknown]
  - Respiratory distress [Unknown]
  - Lung infection [Recovered/Resolved]
  - Squamous cell carcinoma [Recovered/Resolved]
  - Cerebrovascular accident [Unknown]
  - Dehydration [Unknown]
  - Diabetes mellitus [Unknown]

NARRATIVE: CASE EVENT DATE: 20070227
